FAERS Safety Report 23818151 (Version 3)
Quarter: 2024Q2

REPORT INFORMATION
  Report Type: Report from Study
  Country: BR (occurrence: BR)
  Receive Date: 20240506
  Receipt Date: 20240615
  Transmission Date: 20240715
  Serious: Yes (Hospitalization, Other)
  Sender: FDA-Public Use
  Company Number: BR-002147023-NVSC2024BR092367

PATIENT
  Age: 51 Year
  Sex: Female

DRUGS (4)
  1. COSENTYX [Suspect]
     Active Substance: SECUKINUMAB
     Indication: Product used for unknown indication
     Dosage: UNK
     Route: 065
  2. COSENTYX [Suspect]
     Active Substance: SECUKINUMAB
     Dosage: UNK
     Route: 065
     Dates: start: 20240425
  3. COSENTYX [Suspect]
     Active Substance: SECUKINUMAB
     Dosage: UNK (AGAIN ADMINISTERED FIRST DOSE)
     Route: 065
     Dates: start: 20240529
  4. COSENTYX [Suspect]
     Active Substance: SECUKINUMAB
     Dosage: UNK (SECOND DOSE)
     Route: 065
     Dates: start: 20240605

REACTIONS (7)
  - Pneumonia influenzal [Recovered/Resolved]
  - Throat irritation [Recovered/Resolved]
  - Malaise [Not Recovered/Not Resolved]
  - Tracheal pain [Unknown]
  - Cough [Recovered/Resolved]
  - Secretion discharge [Recovered/Resolved]
  - Decreased immune responsiveness [Recovered/Resolved]

NARRATIVE: CASE EVENT DATE: 20240425
